FAERS Safety Report 19841918 (Version 1)
Quarter: 2021Q3

REPORT INFORMATION
  Report Type: Spontaneous
  Country: IR (occurrence: IR)
  Receive Date: 20210915
  Receipt Date: 20210915
  Transmission Date: 20211014
  Serious: Yes (Hospitalization, Other)
  Sender: FDA-Public Use
  Company Number: IR-CASPER PHARMA LLC-2021CAS000474

PATIENT
  Age: 30 Year
  Sex: Female

DRUGS (4)
  1. CEFAZOLIN [Concomitant]
     Active Substance: CEFAZOLIN
     Indication: WOUND INFECTION
     Dosage: 1 GRAM FOR 9 DOSES
     Route: 042
  2. GENTAMICIN. [Concomitant]
     Active Substance: GENTAMICIN
     Indication: WOUND INFECTION
     Dosage: 80 MILLIGRAM FOR 6 DOSES
     Route: 030
  3. BISMUTH, METRONIDAZOLE, TETRACYCLIN [Suspect]
     Active Substance: BISMUTH SUBSALICYLATE\METRONIDAZOLE\TETRACYCLINE HYDROCHLORIDE
     Indication: WOUND INFECTION
     Dosage: 500 MILLIGRAM, 7 DOSES
     Route: 042
  4. METHADONE [Concomitant]
     Active Substance: METHADONE HYDROCHLORIDE
     Indication: ABSTAINS FROM RECREATIONAL DRUGS
     Dosage: UNK
     Route: 065

REACTIONS (1)
  - Toxic leukoencephalopathy [Recovering/Resolving]
